FAERS Safety Report 11298379 (Version 1)
Quarter: 2015Q3

REPORT INFORMATION
  Report Type: Spontaneous
  Country: US (occurrence: US)
  Receive Date: 20150722
  Receipt Date: 20150722
  Transmission Date: 20151125
  Serious: No
  Sender: FDA-Public Use
  Company Number: US-ELI_LILLY_AND_COMPANY-US201109006514

PATIENT
  Age: 69 Year
  Sex: Female

DRUGS (3)
  1. THYROID PREPARATIONS [Concomitant]
     Active Substance: UNSPECIFIED INGREDIENT
     Indication: THYROID DISORDER
  2. EVISTA [Suspect]
     Active Substance: RALOXIFENE HYDROCHLORIDE
     Indication: OSTEOPOROSIS
     Dosage: 60 MG, UNK
     Dates: start: 2006
  3. HORMONES [Concomitant]
     Active Substance: UNSPECIFIED INGREDIENT
     Route: 062

REACTIONS (7)
  - Unevaluable event [Unknown]
  - Drug dose omission [Unknown]
  - Epistaxis [Unknown]
  - Feeling hot [Unknown]
  - Hot flush [Unknown]
  - Thyroid disorder [Unknown]
  - Headache [Unknown]

NARRATIVE: CASE EVENT DATE: 2007
